FAERS Safety Report 23757896 (Version 1)
Quarter: 2024Q2

REPORT INFORMATION
  Report Type: Spontaneous
  Country: US (occurrence: US)
  Receive Date: 20240418
  Receipt Date: 20240418
  Transmission Date: 20240716
  Serious: No
  Sender: FDA-Public Use
  Company Number: US-002147023-NVSC2024US081234

PATIENT
  Age: 58 Year
  Sex: Female

DRUGS (1)
  1. LEQVIO [Suspect]
     Active Substance: INCLISIRAN SODIUM
     Indication: Product used for unknown indication
     Dosage: 284 MG
     Route: 065

REACTIONS (4)
  - Nausea [Unknown]
  - Arthralgia [Unknown]
  - Abdominal distension [Unknown]
  - Myalgia [Unknown]

NARRATIVE: CASE EVENT DATE: 20240413
